FAERS Safety Report 10521886 (Version 2)
Quarter: 2014Q4

REPORT INFORMATION
  Report Type: Spontaneous
  Country: US (occurrence: None)
  Receive Date: 20141014
  Receipt Date: 20141110
  Transmission Date: 20150528
  Serious: Yes (Other)
  Sender: FDA-Public Use
  Company Number: 2014-US-012795

PATIENT
  Age: 48 Year
  Sex: Female
  Weight: 89.3 kg

DRUGS (9)
  1. PROPRANOLOL (PROPRANOLOL HYDROCHLORIDE) [Concomitant]
  2. ABILIFY [Concomitant]
     Active Substance: ARIPIPRAZOLE
  3. DULOXETINE HYDROCHLORIDE (DULOXETINE HYDROCHLORIDE) [Concomitant]
     Active Substance: DULOXETINE HYDROCHLORIDE
  4. TRAMADOL (TRAMADOL HYDROCHLORIDE) [Concomitant]
     Active Substance: TRAMADOL HYDROCHLORIDE
  5. XYREM [Suspect]
     Active Substance: SODIUM OXYBATE
     Indication: NARCOLEPSY
     Route: 048
     Dates: start: 200402, end: 2004
  6. XYREM [Suspect]
     Active Substance: SODIUM OXYBATE
     Indication: CATAPLEXY
     Route: 048
     Dates: start: 200402, end: 2004
  7. ADDERALL [Concomitant]
     Active Substance: AMPHETAMINE ASPARTATE\AMPHETAMINE SULFATE\DEXTROAMPHETAMINE SACCHARATE\DEXTROAMPHETAMINE SULFATE
  8. PROAIR HFA [Concomitant]
     Active Substance: ALBUTEROL SULFATE
  9. METRONIDAZOLE (METRONIDAZOLE) [Concomitant]
     Active Substance: METRONIDAZOLE

REACTIONS (5)
  - Arthralgia [None]
  - Obesity [None]
  - Bipolar disorder [None]
  - Familial tremor [None]
  - Blood pressure increased [None]

NARRATIVE: CASE EVENT DATE: 20141002
